FAERS Safety Report 14314009 (Version 1)
Quarter: 2017Q4

REPORT INFORMATION
  Report Type: Spontaneous
  Country: GR (occurrence: GR)
  Receive Date: 20171221
  Receipt Date: 20171221
  Transmission Date: 20180321
  Serious: Yes (Life-Threatening, Hospitalization)
  Sender: FDA-Public Use
  Company Number: GR-CIPLA LTD.-2017GR24304

PATIENT

DRUGS (2)
  1. SERTRALINE [Suspect]
     Active Substance: SERTRALINE HYDROCHLORIDE
     Indication: CARDIAC DISORDER
     Dosage: UNK
     Route: 065
  2. SERTRALINE [Suspect]
     Active Substance: SERTRALINE HYDROCHLORIDE
     Indication: NEUROSIS

REACTIONS (5)
  - Blood pressure increased [Unknown]
  - Abdominal discomfort [Unknown]
  - Drug administration error [Unknown]
  - Insomnia [Unknown]
  - Weight decreased [Unknown]
